FAERS Safety Report 20392072 (Version 1)
Quarter: 2022Q1

REPORT INFORMATION
  Report Type: Spontaneous
  Country: US (occurrence: US)
  Receive Date: 20220128
  Receipt Date: 20220128
  Transmission Date: 20220424
  Serious: Yes (Other)
  Sender: FDA-Public Use
  Company Number: US-PFIZER INC-202200156672

PATIENT
  Sex: Female

DRUGS (10)
  1. PROTONIX [Suspect]
     Active Substance: PANTOPRAZOLE SODIUM
     Indication: Gastrooesophageal reflux disease
     Dosage: 40 MG, 1X/DAY
     Dates: start: 2006
  2. NEXIUM [Suspect]
     Active Substance: ESOMEPRAZOLE MAGNESIUM
     Indication: Gastrooesophageal reflux disease
     Dosage: UNK
     Dates: start: 2001
  3. NEXIUM 24HR [Suspect]
     Active Substance: ESOMEPRAZOLE MAGNESIUM
     Indication: Gastrooesophageal reflux disease
     Dosage: UNK, DOSAGE AS RECOMMENDED
     Dates: start: 2014
  4. HYDROCHLOROTHIAZIDE [Concomitant]
     Active Substance: HYDROCHLOROTHIAZIDE
     Indication: Diuretic therapy
     Dosage: UNK
  5. IBUPROFEN [Concomitant]
     Active Substance: IBUPROFEN
     Indication: Pain
     Dosage: UNK, AS NEEDED (ON OCCASION)
  6. VITAMIN C [Concomitant]
     Active Substance: ASCORBIC ACID
     Indication: Routine health maintenance
     Dosage: UNK, DAILY
  7. HERBALS [Concomitant]
     Active Substance: HERBALS
     Indication: Routine health maintenance
     Dosage: UNK, DAILY
  8. SUPER CAL [Concomitant]
     Indication: Routine health maintenance
     Dosage: UNK, DAILY
  9. ZANTAC 150 (RANITIDINE HYDROCHLORIDE) [Concomitant]
     Active Substance: RANITIDINE HYDROCHLORIDE
     Dosage: UNK
  10. TUMS [Concomitant]
     Active Substance: CALCIUM CARBONATE
     Indication: Antacid therapy
     Dosage: UNK, DOSAGE AS RECOMMENDED

REACTIONS (1)
  - Chronic kidney disease [Recovered/Resolved]
